FAERS Safety Report 20586440 (Version 2)
Quarter: 2022Q1

REPORT INFORMATION
  Report Type: Report from Study
  Country: US (occurrence: US)
  Receive Date: 20220313
  Receipt Date: 20220331
  Transmission Date: 20220423
  Serious: Yes (Hospitalization)
  Sender: FDA-Public Use
  Company Number: US-GILEAD-2022-0573369

PATIENT
  Age: 36 Year
  Sex: Female

DRUGS (4)
  1. AMBRISENTAN [Suspect]
     Active Substance: AMBRISENTAN
     Indication: Pulmonary arterial hypertension
     Dosage: 10 MG, QD
     Route: 048
     Dates: start: 20210820
  2. ADCIRCA [Concomitant]
     Active Substance: TADALAFIL
  3. TADALAFIL [Concomitant]
     Active Substance: TADALAFIL
  4. UPTRAVI [Concomitant]
     Active Substance: SELEXIPAG

REACTIONS (5)
  - Hysterectomy [Unknown]
  - Headache [Unknown]
  - Pain in jaw [Unknown]
  - Toothache [Unknown]
  - Nausea [Unknown]

NARRATIVE: CASE EVENT DATE: 20220201
